FAERS Safety Report 18040684 (Version 3)
Quarter: 2025Q2

REPORT INFORMATION
  Report Type: Spontaneous
  Country: CA (occurrence: CA)
  Receive Date: 20200717
  Receipt Date: 20250408
  Transmission Date: 20250717
  Serious: Yes (Other)
  Sender: ANI
  Company Number: CA-ANIPHARMA-2020-CA-001348

PATIENT
  Sex: Female

DRUGS (2)
  1. ANASTROZOLE [Suspect]
     Active Substance: ANASTROZOLE
     Indication: Product used for unknown indication
     Route: 048
  2. PALBOCICLIB [Suspect]
     Active Substance: PALBOCICLIB
     Route: 065

REACTIONS (7)
  - Diplopia [Unknown]
  - Dyspnoea [Unknown]
  - Ecchymosis [Unknown]
  - Fatigue [Unknown]
  - Nausea [Unknown]
  - Periorbital oedema [Unknown]
  - Pneumonia [Unknown]
